FAERS Safety Report 17305365 (Version 2)
Quarter: 2020Q3

REPORT INFORMATION
  Report Type: Spontaneous
  Country: US (occurrence: US)
  Receive Date: 20200123
  Receipt Date: 20200717
  Transmission Date: 20201102
  Serious: Yes (Other)
  Sender: FDA-Public Use
  Company Number: US-ROCHE-2526881

PATIENT
  Age: 69 Year
  Sex: Female
  Weight: 61.29 kg

DRUGS (1)
  1. ESBRIET [Suspect]
     Active Substance: PIRFENIDONE
     Indication: IDIOPATHIC PULMONARY FIBROSIS
     Dosage: ONGOING:YES
     Route: 048
     Dates: start: 20190820

REACTIONS (4)
  - Cerebrovascular accident [Recovered/Resolved]
  - Embolic stroke [Recovered/Resolved]
  - Atrial fibrillation [Not Recovered/Not Resolved]
  - Cerebral disorder [Recovered/Resolved]

NARRATIVE: CASE EVENT DATE: 20191123
